FAERS Safety Report 10364854 (Version 1)
Quarter: 2014Q1

REPORT INFORMATION
  Report Type: Spontaneous
  Country: US (occurrence: None)
  Receive Date: 20140306
  Receipt Date: 20140306
  Transmission Date: 20141002
  Serious: Yes (Hospitalization, Other)
  Sender: FDA-Public Use
  Company Number: 163-21880-13063116

PATIENT
  Age: 75 Year
  Sex: Female

DRUGS (10)
  1. REVLIMID (LENALIDOMIDE)(25 MILLIGRAM, CAPSULES) [Suspect]
     Indication: PLASMA CELL MYELOMA
     Dosage: 21 IN 21 D
     Route: 048
     Dates: start: 201208
  2. DEXAMETHASONE(DEXAMETHASONE)(TABLETS) [Concomitant]
  3. COUMADIN(WARFARIN SODIUM)(TABLETS) [Concomitant]
  4. ZOMETA(ZOLEDRONIC ACID) (UNKNOWN) [Concomitant]
  5. GABAPENTIN(GABAPENTIN)(TABLETS) [Concomitant]
  6. OMEPRAZOLE DR(OMEPRAZOLE)(TABLETS) [Concomitant]
  7. METOPROLOL TARTRATE(METOPROLOL TARTRATE) (TABLETS) [Concomitant]
  8. ALLOPURINOL(ALLOPURINOL)(TABLETS) [Concomitant]
  9. AZO STANDARD(PHENAZOPYRIDINE HYDROCHLORIDE)(TABLETS) [Concomitant]
  10. STEROID(ANABOLIC STEROIDS)(UNKNOWN) [Concomitant]

REACTIONS (4)
  - Dehydration [None]
  - Blood potassium decreased [None]
  - Rash [None]
  - Diarrhoea [None]
